FAERS Safety Report 19030704 (Version 1)
Quarter: 2021Q1

REPORT INFORMATION
  Report Type: Spontaneous
  Country: US (occurrence: US)
  Receive Date: 20210318
  Receipt Date: 20210318
  Transmission Date: 20210420
  Serious: Yes (Life-Threatening, Hospitalization)
  Sender: FDA-Public Use
  Company Number: None

PATIENT
  Age: 71 Year
  Sex: Male
  Weight: 124.74 kg

DRUGS (1)
  1. RIVAROXABAN (RIVAROXABAN 15MG TAB, UD) [Suspect]
     Active Substance: RIVAROXABAN
     Indication: ATRIAL FIBRILLATION
     Route: 048
     Dates: start: 20200613, end: 20201125

REACTIONS (7)
  - Haematuria [None]
  - Pericardial effusion [None]
  - Cardiac failure [None]
  - Hypotension [None]
  - Haemorrhage [None]
  - Renal impairment [None]
  - Azotaemia [None]

NARRATIVE: CASE EVENT DATE: 20201125
